FAERS Safety Report 21231703 (Version 1)
Quarter: 2022Q3

REPORT INFORMATION
  Report Type: Spontaneous
  Country: FR (occurrence: FR)
  Receive Date: 20220819
  Receipt Date: 20220819
  Transmission Date: 20221027
  Serious: Yes (Hospitalization)
  Sender: FDA-Public Use
  Company Number: None

PATIENT
  Age: 28 Year
  Sex: Male

DRUGS (3)
  1. TRAMADOL HYDROCHLORIDE [Suspect]
     Active Substance: TRAMADOL HYDROCHLORIDE
     Indication: Product used for unknown indication
     Dosage: 10 TABLETS ADVERTISED ,CHLORHYDRATE DE TRAMADOL, UNIT DOSE : 10 DF ,  THERAPY  END DATE : NASK
     Dates: start: 2008
  2. LYRICA [Suspect]
     Active Substance: PREGABALIN
     Indication: Product used for unknown indication
     Dosage: 8 CAPSULES ANNOUNCED , FORM STRENGTH :^ 300 MG , UNIT DOSE : 8 DF ,  THERAPY  END DATE : NASK
     Dates: start: 2008
  3. RIVOTRIL [Suspect]
     Active Substance: CLONAZEPAM
     Indication: Product used for unknown indication
     Dosage: 4 TABLETS ADVERTISED FOUR-SCORED TABLET ,FORM STRENGTH : 2 MG , UNIT DOSE : 4 DF,THERAPY  END DATE :
     Dates: start: 2008

REACTIONS (4)
  - Bradypnoea [Recovered/Resolved]
  - Intentional product misuse [Recovered/Resolved]
  - Altered state of consciousness [Recovered/Resolved]
  - Oxygen saturation decreased [Recovered/Resolved]

NARRATIVE: CASE EVENT DATE: 20220701
